FAERS Safety Report 18817764 (Version 11)
Quarter: 2021Q3

REPORT INFORMATION
  Report Type: Spontaneous
  Country: DE (occurrence: DE)
  Receive Date: 20210201
  Receipt Date: 20210921
  Transmission Date: 20211014
  Serious: Yes (Hospitalization, Other)
  Sender: FDA-Public Use
  Company Number: DE-TAKEDA-2021TUS005123

PATIENT
  Age: 23 Year
  Sex: Male

DRUGS (14)
  1. ENTYVIO [Suspect]
     Active Substance: VEDOLIZUMAB
     Dosage: UNK
     Route: 042
  2. ENTOCORT REKTAL [Concomitant]
     Route: 054
  3. ENTYVIO [Suspect]
     Active Substance: VEDOLIZUMAB
     Dosage: 300 MILLIGRAM
     Route: 065
  4. BUDENOFALK [Concomitant]
     Active Substance: BUDESONIDE
     Dosage: 6 MILLIGRAM
     Route: 065
  5. MEZAVANT [Suspect]
     Active Substance: MESALAMINE
     Indication: COLITIS ULCERATIVE
     Dosage: 1200 MILLIGRAM, TID
     Route: 065
  6. CORTISONE [Suspect]
     Active Substance: CORTISONE
     Indication: PRODUCT USED FOR UNKNOWN INDICATION
     Route: 065
  7. BUDENOFALK [Concomitant]
     Active Substance: BUDESONIDE
     Dosage: 9 MILLIGRAM
     Route: 065
  8. ENTYVIO [Suspect]
     Active Substance: VEDOLIZUMAB
     Indication: COLITIS ULCERATIVE
     Dosage: UNK
     Route: 058
  9. ENTYVIO [Suspect]
     Active Substance: VEDOLIZUMAB
     Dosage: UNK, Q4WEEKS
     Route: 065
  10. PREDNISOLONE. [Concomitant]
     Active Substance: PREDNISOLONE
     Dosage: 5 MILLIGRAM
  11. PREDNISOLONE. [Concomitant]
     Active Substance: PREDNISOLONE
     Dosage: 15 UNK
     Route: 065
  12. MEZAVANT [Suspect]
     Active Substance: MESALAMINE
     Dosage: 3600 MILLIGRAM
     Route: 065
  13. PREDNISOLONE. [Concomitant]
     Active Substance: PREDNISOLONE
     Dosage: 10 MILLIGRAM
     Route: 065
  14. STELARA [Concomitant]
     Active Substance: USTEKINUMAB

REACTIONS (18)
  - Inflammation [Unknown]
  - Therapeutic response decreased [Unknown]
  - Sputum abnormal [Unknown]
  - Condition aggravated [Unknown]
  - Hepatic steatosis [Unknown]
  - Gastrointestinal sounds abnormal [Unknown]
  - Diarrhoea [Unknown]
  - Abdominal distension [Unknown]
  - Haematochezia [Unknown]
  - Autoimmune pancreatitis [Unknown]
  - Dyspepsia [Unknown]
  - Flatulence [Unknown]
  - Chest pain [Unknown]
  - Pancreatitis acute [Unknown]
  - Pain [Unknown]
  - Colitis [Unknown]
  - Abnormal faeces [Unknown]
  - Abdominal pain upper [Not Recovered/Not Resolved]
